FAERS Safety Report 4644241-7 (Version None)
Quarter: 2005Q2

REPORT INFORMATION
  Report Type: 
  Country: None (occurrence: None)
  Receive Date: 20050331
  Receipt Date: 20050112
  Transmission Date: 20051028
  Serious: No
  Sender: FDA-Public Use
  Company Number: 05P-163-0285235-00

PATIENT
  Age: 70 Year
  Sex: Female
  Weight: 92.9874 kg

DRUGS (4)
  1. HUMIRA [Suspect]
     Indication: RHEUMATOID ARTHRITIS
     Dosage: 40 MG, 1 IN 2 WK, SUBCUTANEOUS
     Route: 058
     Dates: start: 20041001
  2. METHOTREXATE [Concomitant]
  3. PREDNISONE [Concomitant]
  4. QUINAPRIL HCL [Concomitant]

REACTIONS (5)
  - ASTHENIA [None]
  - HEADACHE [None]
  - OEDEMA PERIPHERAL [None]
  - SWELLING FACE [None]
  - TREMOR [None]
